FAERS Safety Report 4745785-X (Version None)
Quarter: 2005Q3

REPORT INFORMATION
  Report Type: 
  Country: None (occurrence: None)
  Receive Date: 20050816
  Receipt Date: 20050112
  Transmission Date: 20060218
  Serious: No
  Sender: FDA-Public Use
  Company Number: US-BRISTOL-MYERS SQUIBB COMPANY-12866638

PATIENT
  Sex: Female

DRUGS (4)
  1. LAC-HYDRIN [Suspect]
     Indication: DRY SKIN
     Dosage: USED DAILY FOR YEARS
     Route: 061
  2. ZANTAC [Concomitant]
  3. ZYRTEC [Concomitant]
  4. PROTONIX [Concomitant]

REACTIONS (1)
  - SKIN IRRITATION [None]
